FAERS Safety Report 12180559 (Version 1)
Quarter: 2016Q1

REPORT INFORMATION
  Report Type: Spontaneous
  Country: US (occurrence: US)
  Receive Date: 20160315
  Receipt Date: 20160315
  Transmission Date: 20160526
  Serious: Yes (Hospitalization)
  Sender: FDA-Public Use
  Company Number: US-009507513-1603USA005708

PATIENT
  Age: 21 Year
  Sex: Female

DRUGS (1)
  1. JANUMET [Suspect]
     Active Substance: METFORMIN HYDROCHLORIDE\SITAGLIPTIN PHOSPHATE
     Indication: TYPE 2 DIABETES MELLITUS
     Dosage: 1 TABLET TWICE DAILY
     Route: 048
     Dates: start: 20160302, end: 20160303

REACTIONS (5)
  - Nausea [Recovering/Resolving]
  - Vomiting [Recovering/Resolving]
  - Dyspnoea [Recovering/Resolving]
  - Chest pain [Recovering/Resolving]
  - Blood glucose increased [Recovering/Resolving]

NARRATIVE: CASE EVENT DATE: 20160303
